FAERS Safety Report 4918745-3 (Version None)
Quarter: 2006Q1

REPORT INFORMATION
  Report Type: 
  Country: None (occurrence: None)
  Receive Date: 20060216
  Receipt Date: 20060127
  Transmission Date: 20060701
  Serious: Yes (Other)
  Sender: FDA-Public Use
  Company Number: US_0502111803

PATIENT
  Age: 38 Year
  Sex: Female

DRUGS (1)
  1. ZYPREXA [Suspect]
     Indication: SCHIZOPHRENIA
     Dosage: 25 MG, ORAL
     Route: 048
     Dates: start: 19990101

REACTIONS (9)
  - ARTHROPATHY [None]
  - DIABETES MELLITUS [None]
  - HYPERTENSION [None]
  - PRESCRIBED OVERDOSE [None]
  - SLEEP DISORDER [None]
  - UTERINE DISORDER [None]
  - UTERINE PROLAPSE [None]
  - WEIGHT INCREASED [None]
  - WEIGHT LOSS POOR [None]
